FAERS Safety Report 9903567 (Version 1)
Quarter: 2014Q1

REPORT INFORMATION
  Report Type: Report from Study
  Country: US (occurrence: US)
  Receive Date: 20140217
  Receipt Date: 20140217
  Transmission Date: 20141002
  Serious: Yes (Other)
  Sender: FDA-Public Use
  Company Number: US-ABBVIE-14P-163-1198589-00

PATIENT
  Sex: Female
  Weight: 59.02 kg

DRUGS (4)
  1. HUMIRA [Suspect]
     Indication: PSORIASIS
     Route: 058
     Dates: start: 2008, end: 201309
  2. HUMIRA [Suspect]
     Route: 058
     Dates: start: 201311
  3. LEXAPRO [Concomitant]
     Indication: DEPRESSION
  4. ALLEGRA [Concomitant]
     Indication: MENIERE^S DISEASE

REACTIONS (2)
  - Osteoarthritis [Recovered/Resolved]
  - Arthralgia [Recovering/Resolving]
